FAERS Safety Report 12451696 (Version 1)
Quarter: 2016Q2

REPORT INFORMATION
  Report Type: Spontaneous
  Country: US (occurrence: US)
  Receive Date: 20160609
  Receipt Date: 20160609
  Transmission Date: 20160815
  Serious: No
  Sender: FDA-Public Use
  Company Number: GXBR2016US000769

PATIENT
  Sex: Female
  Weight: 63.49 kg

DRUGS (4)
  1. MULTI VITAMIN [Concomitant]
     Active Substance: VITAMINS
     Dosage: UNK DF, UNK
  2. CLOTRIMAZOLE AND BETAMETHASONE [Suspect]
     Active Substance: BETAMETHASONE\CLOTRIMAZOLE
     Indication: PERINEAL RASH
     Dosage: UNK DF, UNK
     Route: 061
     Dates: start: 201601
  3. CLOTRIMAZOLE AND BETAMETHASONE [Suspect]
     Active Substance: BETAMETHASONE\CLOTRIMAZOLE
     Indication: PAIN IN EXTREMITY
     Dosage: UNK DF, UNK
     Route: 061
     Dates: end: 20160223
  4. HERBALS NOS W/MINERALS NOS/VITAMINS NOS [Concomitant]
     Dosage: UNK DF, UNK

REACTIONS (5)
  - Erythema [Unknown]
  - Hypersensitivity [Unknown]
  - Insomnia [Unknown]
  - Drug ineffective [Not Recovered/Not Resolved]
  - Pain [Unknown]
